FAERS Safety Report 9505446 (Version 1)
Quarter: 2013Q1

REPORT INFORMATION
  Report Type: Spontaneous
  Country: US (occurrence: None)
  Receive Date: 20130220
  Receipt Date: 20130220
  Transmission Date: 20140127
  Serious: No
  Sender: FDA-Public Use
  Company Number: 1000041681

PATIENT
  Age: 47 Year
  Sex: Female

DRUGS (3)
  1. VIIBRYD (VILAZODONE HYDROCHLORIDE) [Suspect]
     Indication: DEPRESSION
     Dosage: 5MG (5 MG, 1 IN 1 D), ORAL
     Route: 048
     Dates: start: 201212, end: 201212
  2. SYNTHROID (LEVOTHYROXINE SODIUM) (LEVOTHYROXINE SODIUM) [Concomitant]
  3. AMLODIPINE (AMLODIPINE) [Concomitant]

REACTIONS (8)
  - Sleep disorder [None]
  - Panic attack [None]
  - Hot flush [None]
  - Depression [None]
  - Headache [None]
  - Nausea [None]
  - Dizziness [None]
  - Anxiety [None]
